FAERS Safety Report 10690503 (Version 1)
Quarter: 2015Q1

REPORT INFORMATION
  Report Type: Spontaneous
  Country: FR (occurrence: None)
  Receive Date: 20150102
  Receipt Date: 20150102
  Transmission Date: 20150720
  Serious: Yes (Death, Hospitalization)
  Sender: FDA-Public Use
  Company Number: 2688056

PATIENT
  Age: 52 Year
  Sex: Male

DRUGS (4)
  1. ETOPOSIDE. [Concomitant]
     Active Substance: ETOPOSIDE
  2. CISPLATINE [Concomitant]
     Active Substance: CISPLATIN
  3. CARBOPLATIN. [Suspect]
     Active Substance: CARBOPLATIN
     Indication: PRODUCT USED FOR UNKNOWN INDICATION
     Dosage: INTRAVENOUS DRIP
     Route: 042
     Dates: start: 20140604
  4. PACLITAXEL. [Suspect]
     Active Substance: PACLITAXEL
     Indication: PRODUCT USED FOR UNKNOWN INDICATION
     Dosage: INTRAVENOUS DRIP
     Route: 042
     Dates: start: 20140723

REACTIONS (10)
  - Pneumonia pneumococcal [None]
  - Neutropenia [None]
  - Sepsis [None]
  - Neoplasm progression [None]
  - Depressed level of consciousness [None]
  - Respiratory arrest [None]
  - Toxicity to various agents [None]
  - Aplasia [None]
  - Blood bilirubin increased [None]
  - Bronchial obstruction [None]
